FAERS Safety Report 8817505 (Version 2)
Quarter: 2012Q4

REPORT INFORMATION
  Report Type: 
  Country: BR (occurrence: BR)
  Receive Date: 20121004
  Receipt Date: 20121011
  Transmission Date: 20130627
  Serious: Yes (Other)
  Sender: FDA-Public Use
  Company Number: BR-PFIZER INC-2012243015

PATIENT
  Age: 71 Year
  Sex: Female

DRUGS (3)
  1. XALATAN [Suspect]
     Indication: GLAUCOMA
     Dosage: one drop in each eye (3 ug), unspecified frequency
     Route: 047
     Dates: start: 2008, end: 201209
  2. LIPITOR [Suspect]
     Indication: BLOOD CHOLESTEROL INCREASED
     Dosage: 40 mg (one tablet), 1x/day
     Route: 048
     Dates: start: 20051007
  3. SIMVASTATIN [Concomitant]
     Dosage: UNK

REACTIONS (2)
  - Cataract [Unknown]
  - Cerebrovascular accident [Unknown]
